FAERS Safety Report 18397589 (Version 1)
Quarter: 2020Q4

REPORT INFORMATION
  Report Type: Spontaneous
  Country: US (occurrence: US)
  Receive Date: 20201018
  Receipt Date: 20201018
  Transmission Date: 20210114
  Serious: No
  Sender: FDA-Public Use
  Company Number: None

PATIENT
  Age: 60 Year
  Sex: Female

DRUGS (1)
  1. NITROGLYCERIN SUBLINGUAL TABLETS USP 0.4 MG [Suspect]
     Active Substance: NITROGLYCERIN
     Indication: CHEST PAIN
     Dosage: ?          OTHER FREQUENCY:Q5MINUTES MAX OF 3;?
     Route: 060
     Dates: start: 20201017, end: 20201017

REACTIONS (5)
  - Wrong technique in product usage process [None]
  - Incorrect dose administered [None]
  - Chest pain [None]
  - Product solubility abnormal [None]
  - Headache [None]

NARRATIVE: CASE EVENT DATE: 20201017
